FAERS Safety Report 22175625 (Version 1)
Quarter: 2023Q2

REPORT INFORMATION
  Report Type: Spontaneous
  Country: US (occurrence: None)
  Receive Date: 20230404
  Receipt Date: 20230404
  Transmission Date: 20230722
  Serious: Yes (Disabling)
  Sender: FDA-Public Use
  Company Number: None

PATIENT
  Age: 51 Year
  Sex: Male
  Weight: 74.25 kg

DRUGS (6)
  1. TRUVADA [Suspect]
     Active Substance: EMTRICITABINE\TENOFOVIR DISOPROXIL FUMARATE
     Indication: Prophylaxis against HIV infection
     Dosage: OTHER QUANTITY : 30 TABLET(S);?FREQUENCY : DAILY;?
     Route: 048
     Dates: start: 20150601, end: 20221205
  2. HYDROCHLOROTHIAZIDE [Concomitant]
     Active Substance: HYDROCHLOROTHIAZIDE
  3. DESCOVY [Concomitant]
     Active Substance: EMTRICITABINE\TENOFOVIR ALAFENAMIDE FUMARATE
  4. CELEBREX [Concomitant]
     Active Substance: CELECOXIB
  5. VITAMIN D [Concomitant]
     Active Substance: VITAMIN D NOS
  6. Vegan Omega-3 oil [Concomitant]

REACTIONS (3)
  - Inappropriate schedule of product administration [None]
  - Osteonecrosis [None]
  - Myalgia [None]

NARRATIVE: CASE EVENT DATE: 20221201
